FAERS Safety Report 20770288 (Version 6)
Quarter: 2023Q1

REPORT INFORMATION
  Report Type: Spontaneous
  Country: US (occurrence: US)
  Receive Date: 20220429
  Receipt Date: 20230321
  Transmission Date: 20230418
  Serious: Yes (Other)
  Sender: FDA-Public Use
  Company Number: US-PFIZER INC-202200630213

PATIENT
  Age: 31 Year
  Sex: Male

DRUGS (3)
  1. XELJANZ XR [Suspect]
     Active Substance: TOFACITINIB CITRATE
     Indication: Colitis ulcerative
     Dosage: 22 MG, 1X/DAY
     Route: 048
     Dates: start: 20220316
  2. XELJANZ XR [Suspect]
     Active Substance: TOFACITINIB CITRATE
     Dosage: 11 MG, 1X/DAY
     Route: 048
     Dates: start: 202207
  3. XELJANZ XR [Suspect]
     Active Substance: TOFACITINIB CITRATE
     Dosage: 22 MG, 1X/DAY
     Route: 048
     Dates: start: 202210

REACTIONS (7)
  - Rectal haemorrhage [Unknown]
  - Haemoglobin decreased [Unknown]
  - Product dose omission issue [Unknown]
  - Drug ineffective [Unknown]
  - Bowel movement irregularity [Unknown]
  - Blood test abnormal [Unknown]
  - Memory impairment [Unknown]

NARRATIVE: CASE EVENT DATE: 20220101
